FAERS Safety Report 8613425 (Version 3)
Quarter: 2012Q4

REPORT INFORMATION
  Report Type: 
  Country: JP (occurrence: JP)
  Receive Date: 20120613
  Receipt Date: 20121008
  Transmission Date: 20130627
  Serious: Yes (Hospitalization, Other)
  Sender: FDA-Public Use
  Company Number: JP-MERCK SHARP  DOHME D.O.O.-1206USA01925

PATIENT
  Age: 99 Year
  Sex: Female
  Weight: 38 kg

DRUGS (12)
  1. JANUVIA TABLETS 50MG [Suspect]
     Indication: DIABETES MELLITUS
     Dosage: 50 mg, bid
     Route: 048
     Dates: start: 20111014, end: 20120524
  2. MEDET [Concomitant]
     Dosage: 250 mg, bid
     Route: 048
     Dates: start: 20111014, end: 20120524
  3. GLUFAST [Suspect]
     Indication: DIABETES MELLITUS
     Dosage: 10 mg, tid
     Route: 048
     Dates: start: 20111014, end: 20120524
  4. INSULIN [Concomitant]
     Dosage: dosage is uncertain during a day
     Route: 058
  5. GLYCORAN [Suspect]
     Indication: DIABETES MELLITUS
     Dosage: 250 mg, bid
     Route: 048
     Dates: start: 20111014, end: 20120524
  6. GASMOTIN [Suspect]
     Dosage: 5 mg, tid
     Route: 048
     Dates: start: 20111014
  7. DAI-KENCHU-TO [Suspect]
     Dosage: 2.5 g, tid
     Route: 048
     Dates: start: 20111014, end: 20120524
  8. LANIRAPID [Suspect]
     Dosage: 0.1 mg, qd
     Route: 048
     Dates: start: 20111014, end: 20120524
  9. LANSOPRAZOLE [Suspect]
     Dosage: 15 mg, qd
     Route: 048
     Dates: start: 20111014, end: 20120524
  10. MICARDIS [Suspect]
     Dosage: 40 mg, qd
     Route: 048
     Dates: start: 20111014, end: 20120524
  11. NIFELANTERN [Suspect]
     Dosage: 20 mg, qd
     Route: 048
     Dates: start: 20111014, end: 20120524
  12. BAYASPIRIN [Suspect]
     Dosage: 100 mg, qd
     Route: 048
     Dates: start: 20111014, end: 20120524

REACTIONS (2)
  - Hiatus hernia [Recovered/Resolved]
  - Femoral neck fracture [None]
